FAERS Safety Report 23368281 (Version 2)
Quarter: 2024Q1

REPORT INFORMATION
  Report Type: Spontaneous
  Country: JP (occurrence: JP)
  Receive Date: 20240105
  Receipt Date: 20240112
  Transmission Date: 20240409
  Serious: Yes (Death, Life-Threatening, Hospitalization, Other)
  Sender: FDA-Public Use
  Company Number: JP-Accord-399038

PATIENT
  Age: 71 Year
  Sex: Female

DRUGS (1)
  1. METHOTREXATE [Suspect]
     Active Substance: METHOTREXATE
     Indication: Rheumatoid arthritis

REACTIONS (18)
  - Hepatorenal failure [Fatal]
  - Pancytopenia [Fatal]
  - Lymphadenopathy [Fatal]
  - Marginal zone lymphoma [Fatal]
  - Fatigue [Unknown]
  - Condition aggravated [Fatal]
  - Lymphoproliferative disorder [Fatal]
  - Hyperkalaemia [Fatal]
  - Hyperuricaemia [Fatal]
  - Fibrin D dimer increased [Fatal]
  - Paraproteinaemia [Fatal]
  - Epstein-Barr virus test positive [Fatal]
  - Multiple organ dysfunction syndrome [Fatal]
  - Thrombosis [Fatal]
  - Respiratory disorder [Fatal]
  - Depressed level of consciousness [Fatal]
  - Blood pressure decreased [Fatal]
  - Tumour lysis syndrome [Fatal]
